FAERS Safety Report 12552137 (Version 1)
Quarter: 2016Q3

REPORT INFORMATION
  Report Type: Spontaneous
  Country: US (occurrence: None)
  Receive Date: 20160712
  Receipt Date: 20160712
  Transmission Date: 20161109
  Serious: Yes (Life-Threatening)
  Sender: FDA-Public Use
  Company Number: None

PATIENT
  Age: 77 Year
  Sex: Female
  Weight: 50.12 kg

DRUGS (11)
  1. OXYGEN. [Concomitant]
     Active Substance: OXYGEN
  2. LOSARTAN POTASSIUM. [Concomitant]
     Active Substance: LOSARTAN POTASSIUM
  3. RENVELA [Concomitant]
     Active Substance: SEVELAMER CARBONATE
  4. ISOSORBIDE. [Concomitant]
     Active Substance: ISOSORBIDE
  5. ELIQUIS [Suspect]
     Active Substance: APIXABAN
     Indication: ANTICOAGULANT THERAPY
     Dosage: ONE PILL 2XDAY MOUTH
     Route: 048
     Dates: start: 20160607, end: 20160618
  6. ASPIRIN. [Concomitant]
     Active Substance: ASPIRIN
  7. ADVIL [Concomitant]
     Active Substance: IBUPROFEN
  8. RENO [Concomitant]
  9. ATORVASTATIN [Concomitant]
     Active Substance: ATORVASTATIN
  10. METOPROLOL SUCC ER [Concomitant]
     Active Substance: METOPROLOL SUCCINATE
  11. DOCUSATE SODIUM. [Concomitant]
     Active Substance: DOCUSATE SODIUM

REACTIONS (8)
  - Asthenia [None]
  - Vomiting [None]
  - Dyspnoea [None]
  - Nausea [None]
  - General physical health deterioration [None]
  - Chest discomfort [None]
  - Feeling abnormal [None]
  - Chest pain [None]

NARRATIVE: CASE EVENT DATE: 20160609
